FAERS Safety Report 5427576-X (Version None)
Quarter: 2007Q3

REPORT INFORMATION
  Report Type: 
  Country: None (occurrence: None)
  Receive Date: 20070828
  Receipt Date: 20070821
  Transmission Date: 20080115
  Serious: Yes (Hospitalization)
  Sender: FDA-Public Use
  Company Number: B0484095A

PATIENT
  Sex: Female

DRUGS (3)
  1. KIVEXA [Suspect]
     Indication: HIV INFECTION
     Route: 048
  2. EFAVIRENZ [Concomitant]
  3. SEPTRIN [Concomitant]

REACTIONS (4)
  - HEPATIC FAILURE [None]
  - HYPERSENSITIVITY [None]
  - JAUNDICE [None]
  - YELLOW SKIN [None]
